FAERS Safety Report 7934239-5 (Version None)
Quarter: 2011Q4

REPORT INFORMATION
  Report Type: 
  Country: None (occurrence: None)
  Receive Date: 20111118
  Receipt Date: 20111104
  Transmission Date: 20120403
  Serious: Yes (Hospitalization)
  Sender: FDA-Public Use
  Company Number: 1000024171

PATIENT
  Age: 53 Year
  Sex: Male

DRUGS (10)
  1. KAYEXALATE [Suspect]
     Dosage: 6.4286 G (15 GM,3 IN 1 WK)
     Dates: start: 20110603
  2. CALCIUM CARBONATE [Suspect]
     Dosage: ORAL
  3. RENAGEL [Suspect]
     Dosage: 1 D F (1 DOSAGE FORMS,1 IN 1 D),ORAL
  4. ARANESP [Suspect]
     Dosage: 3.3333 MCG (50 MCG,1 IN 15 D), SUBCUTANEOUS
     Route: 058
  5. CITALOPRAM HYDROBROMIDE [Suspect]
     Dosage: 20 MG (20 MG, L IN 1 D),ORAL
     Route: 048
  6. LEVETIRACETAM [Concomitant]
  7. EUPRESSYL (URAPIDIL) [Suspect]
     Dosage: 90 MG (90 RUG, 1 IN 1 D),ORAL
     Route: 048
     Dates: start: 20110529
  8. PREDNISONE [Suspect]
     Dosage: 1 DF (1 DOSAGE FORMS,1 IN 1
     Dates: start: 20110501
  9. VALPROATE SODIUM [Suspect]
     Dosage: 1 G (1 GM, 1 IN 1 D) , ORAL
     Route: 048
     Dates: start: 20110716
  10. CALCIPARINE [Suspect]
     Dosage: SUBCUTANEOUS
     Route: 058
     Dates: start: 20110708, end: 20110808

REACTIONS (4)
  - ANAEMIA [None]
  - RENAL IMPAIRMENT [None]
  - CONDITION AGGRAVATED [None]
  - THROMBOCYTOPENIA [None]
